FAERS Safety Report 18682880 (Version 1)
Quarter: 2020Q4

REPORT INFORMATION
  Report Type: Spontaneous
  Country: FR (occurrence: FR)
  Receive Date: 20201230
  Receipt Date: 20201230
  Transmission Date: 20210114
  Serious: Yes (Hospitalization, Other)
  Sender: FDA-Public Use
  Company Number: FR-PFIZER INC-2020517260

PATIENT
  Age: 71 Year
  Sex: Male
  Weight: 77 kg

DRUGS (2)
  1. MEKTOVI [Suspect]
     Active Substance: BINIMETINIB
     Indication: PLASMA CELL MYELOMA
     Dosage: 60 MG DAILY
     Route: 048
     Dates: start: 20200805, end: 20201008
  2. BRAFTOVI [Suspect]
     Active Substance: ENCORAFENIB
     Indication: PLASMA CELL MYELOMA
     Dosage: 300 MG, DAILY
     Route: 048
     Dates: start: 20200805, end: 20201008

REACTIONS (2)
  - Acute kidney injury [Not Recovered/Not Resolved]
  - Off label use [Unknown]

NARRATIVE: CASE EVENT DATE: 20200805
